FAERS Safety Report 6567765-4 (Version None)
Quarter: 2010Q1

REPORT INFORMATION
  Report Type: 
  Country: None (occurrence: None)
  Receive Date: 20100203
  Receipt Date: 20100125
  Transmission Date: 20100710
  Serious: Yes (Other)
  Sender: FDA-Public Use
  Company Number: JP-ASTRAZENECA-2010SE03638

PATIENT
  Age: 30324 Day
  Sex: Male
  Weight: 84 kg

DRUGS (1)
  1. COKENZEN [Suspect]
     Indication: HYPERTENSION
     Dosage: 16/12.5 MG
     Route: 048
     Dates: start: 20100105, end: 20100105

REACTIONS (1)
  - LARYNGEAL OEDEMA [None]
